FAERS Safety Report 9152568 (Version 2)
Quarter: 2013Q3

REPORT INFORMATION
  Report Type: Report from Study
  Country: FR (occurrence: FR)
  Receive Date: 20130308
  Receipt Date: 20130813
  Transmission Date: 20140515
  Serious: Yes (Hospitalization, Other)
  Sender: FDA-Public Use
  Company Number: FR-PFIZER INC-2013074399

PATIENT
  Age: 84 Year
  Sex: Male
  Weight: 68 kg

DRUGS (1)
  1. TORISEL [Suspect]
     Indication: MANTLE CELL LYMPHOMA
     Dosage: FROM 175 MG TO 75 MG WEEKLY
     Route: 042
     Dates: start: 20120516, end: 20121108

REACTIONS (5)
  - Streptococcal sepsis [Recovered/Resolved]
  - Pancytopenia [Recovered/Resolved]
  - Tooth abscess [Recovered/Resolved]
  - Lymphocytosis [Recovered/Resolved]
  - Oedema peripheral [Recovered/Resolved]
